FAERS Safety Report 16134672 (Version 1)
Quarter: 2019Q1

REPORT INFORMATION
  Report Type: Spontaneous
  Country: IT (occurrence: IT)
  Receive Date: 20190329
  Receipt Date: 20190329
  Transmission Date: 20190418
  Serious: Yes (Death, Hospitalization)
  Sender: FDA-Public Use
  Company Number: IT-PFIZER INC-2019137120

PATIENT
  Age: 40 Year
  Sex: Female
  Weight: 89 kg

DRUGS (2)
  1. MISOPROSTOL. [Suspect]
     Active Substance: MISOPROSTOL
     Indication: ABORTION INDUCED
     Dosage: 400 UG, SINGLE, TOTAL
     Route: 048
     Dates: start: 20190125, end: 20190125
  2. MIFEPRISTONE [Suspect]
     Active Substance: MIFEPRISTONE
     Indication: ABORTION INDUCED
     Dosage: 600 MG, SINGLE, TOTAL
     Route: 048
     Dates: start: 20190123, end: 20190123

REACTIONS (5)
  - Product use in unapproved indication [Unknown]
  - Pain in extremity [Fatal]
  - Septic shock [Fatal]
  - Pulmonary embolism [Fatal]
  - Hyperpyrexia [Fatal]

NARRATIVE: CASE EVENT DATE: 20190125
